FAERS Safety Report 5511457-7 (Version None)
Quarter: 2007Q4

REPORT INFORMATION
  Report Type: 
  Country: None (occurrence: None)
  Receive Date: 20071107
  Receipt Date: 20071023
  Transmission Date: 20080405
  Serious: Yes (Other)
  Sender: FDA-Public Use
  Company Number: 17733

PATIENT
  Age: 16 Year
  Sex: Female

DRUGS (2)
  1. METHOTREXATE [Suspect]
     Dosage: 22.5 MG FREQ
  2. ENBREL [Suspect]
     Indication: RHEUMATOID ARTHRITIS
     Dosage: 25 MG FREQ SC
     Route: 058
     Dates: end: 20061224

REACTIONS (3)
  - ABORTION SPONTANEOUS [None]
  - CHLAMYDIA SEROLOGY POSITIVE [None]
  - DRUG EXPOSURE DURING PREGNANCY [None]
